FAERS Safety Report 14175466 (Version 2)
Quarter: 2018Q1

REPORT INFORMATION
  Report Type: Spontaneous
  Country: US (occurrence: US)
  Receive Date: 20171109
  Receipt Date: 20180102
  Transmission Date: 20180508
  Serious: Yes (Other)
  Sender: FDA-Public Use
  Company Number: US-BAUSCH-BL-2017-031215

PATIENT
  Sex: Male

DRUGS (1)
  1. TIMOPTIC [Suspect]
     Active Substance: TIMOLOL MALEATE
     Indication: EXFOLIATION GLAUCOMA
     Dosage: ABOUT 4 YEARS PRIOR
     Route: 047

REACTIONS (2)
  - Blindness unilateral [Not Recovered/Not Resolved]
  - Drug hypersensitivity [Recovered/Resolved]
